FAERS Safety Report 24883503 (Version 1)
Quarter: 2025Q1

REPORT INFORMATION
  Report Type: Spontaneous
  Country: US (occurrence: None)
  Receive Date: 20250124
  Receipt Date: 20250124
  Transmission Date: 20250408
  Serious: Yes (Hospitalization)
  Sender: FDA-CTU
  Company Number: None

PATIENT
  Sex: Female

DRUGS (3)
  1. SYNAGIS [Suspect]
     Active Substance: PALIVIZUMAB
     Indication: Bronchopulmonary dysplasia
     Dosage: INJECT 15MG PER KG IN THE MUSCLE ONCE PER MONTH??THERAPY STOPPED ON 01/25
     Route: 030
     Dates: start: 20241203
  2. OMEPRAZOLE POW [Concomitant]
  3. POLY-VI-SOL DROP 50MG/ML [Concomitant]

REACTIONS (1)
  - Hospitalisation [None]
